FAERS Safety Report 7845720-1 (Version None)
Quarter: 2011Q4

REPORT INFORMATION
  Report Type: 
  Country: None (occurrence: None)
  Receive Date: 20111025
  Receipt Date: 20111021
  Transmission Date: 20120403
  Serious: Yes (Death)
  Sender: FDA-Public Use
  Company Number: US-ABBOTT-11P-163-0867767-00

PATIENT
  Sex: Female

DRUGS (1)
  1. HUMIRA [Suspect]
     Indication: RHEUMATOID ARTHRITIS
     Dates: end: 20110901

REACTIONS (2)
  - ARRHYTHMIA [None]
  - CARDIAC FAILURE CONGESTIVE [None]
